FAERS Safety Report 21602381 (Version 1)
Quarter: 2022Q4

REPORT INFORMATION
  Report Type: Spontaneous
  Country: US (occurrence: None)
  Receive Date: 20221115
  Receipt Date: 20221115
  Transmission Date: 20230113
  Serious: Yes (unspecified)
  Sender: FDA-Public Use
  Company Number: None

PATIENT
  Age: 47 Year
  Sex: Female
  Weight: 99 kg

DRUGS (9)
  1. TRUDHESA [Suspect]
     Active Substance: DIHYDROERGOTAMINE MESYLATE
     Indication: Migraine
     Dosage: FREQUENCY : ONCE;?OTHER ROUTE : NONE; ON ONSET OF  MIGRAINE?
     Route: 050
     Dates: start: 20221113, end: 20221113
  2. SYNTHROID [Concomitant]
     Active Substance: LEVOTHYROXINE SODIUM
  3. LABETALOL [Concomitant]
     Active Substance: LABETALOL\LABETALOL HYDROCHLORIDE
  4. syntheoid [Concomitant]
  5. Maxine [Concomitant]
  6. SINGULAIR [Concomitant]
     Active Substance: MONTELUKAST SODIUM
  7. AIMOVIG [Concomitant]
     Active Substance: ERENUMAB-AOOE
  8. VITAMIN D NOS [Concomitant]
     Active Substance: VITAMIN D NOS
  9. VITAMINS [Concomitant]
     Active Substance: VITAMINS

REACTIONS (4)
  - Urticaria [None]
  - Petechiae [None]
  - Neuralgia [None]
  - Burning sensation [None]

NARRATIVE: CASE EVENT DATE: 20221113
